FAERS Safety Report 8233646-3 (Version None)
Quarter: 2012Q1

REPORT INFORMATION
  Report Type: 
  Country: None (occurrence: None)
  Receive Date: 20120307
  Receipt Date: 20110411
  Transmission Date: 20120608
  Serious: Yes (Other)
  Sender: FDA-Public Use
  Company Number: PHHY2011US26227

PATIENT
  Age: 16 Year
  Sex: Male

DRUGS (5)
  1. SEROQUEL [Concomitant]
  2. AFINITOR [Suspect]
     Indication: ASTROCYTOMA
     Dosage: 7.5 MG, DAILY, ORAL
     Route: 048
     Dates: start: 20110312
  3. AFINITOR [Suspect]
     Indication: TUBEROUS SCLEROSIS
     Dosage: 7.5 MG, DAILY, ORAL
     Route: 048
     Dates: start: 20110312
  4. ZOLOFT [Concomitant]
  5. METFORMIN HCL [Concomitant]

REACTIONS (1)
  - STOMATITIS [None]
